FAERS Safety Report 16424649 (Version 9)
Quarter: 2022Q3

REPORT INFORMATION
  Report Type: Spontaneous
  Country: GB (occurrence: GB)
  Receive Date: 20190613
  Receipt Date: 20220718
  Transmission Date: 20221026
  Serious: Yes (Other)
  Sender: FDA-Public Use
  Company Number: None

PATIENT
  Sex: Male

DRUGS (9)
  1. CLONAZEPAM [Suspect]
     Active Substance: CLONAZEPAM
     Indication: Schizophrenia
     Dosage: 0.5 MILLIGRAM, PM  (EVERY NIGHT)
  2. OLANZAPINE [Suspect]
     Active Substance: OLANZAPINE
     Indication: Schizophrenia
     Dosage: 20 MG, HS, (20 MG EVERY NIGHT)
  3. CODEINE [Suspect]
     Active Substance: CODEINE
     Indication: Schizophrenia
     Dosage: 15 MG, PRN
  4. FLUPENTIXOL [Suspect]
     Active Substance: FLUPENTIXOL
     Indication: Schizophrenia
     Dosage: 200 MILLIGRAM, Q2W, 1 WEEKS, , HS,?(20 MG EVERY NIGHT)
  5. VALPROATE SODIUM [Suspect]
     Active Substance: VALPROATE SODIUM
     Indication: Schizophrenia
     Dosage: 700 MG ON - ONCE EVERY NIGHT ALSO 500 MG-ONCE EVERY MORNING
  6. VALPROATE SODIUM [Suspect]
     Active Substance: VALPROATE SODIUM
     Indication: Schizophrenia
     Dosage: 500MG OM - ONCE EVERY MORNING
  7. CLONAZEPAM [Suspect]
     Active Substance: CLONAZEPAM
     Indication: Schizophrenia
     Dosage: 1 MG, ONCE PER DAY
  8. VALPROATE SODIUM [Suspect]
     Active Substance: VALPROATE SODIUM
     Indication: Schizophrenia
     Dosage: 1200 MG, QD (500MG OM 700MG ON),  (500 MG EVERY MORNING, 700 MG EVERY NIGHT)
  9. CLONAZEPAM [Suspect]
     Active Substance: CLONAZEPAM
     Indication: Product used for unknown indication
     Dosage: 5 MG, DAILY

REACTIONS (2)
  - Intentional product misuse [Unknown]
  - Neutropenia [Recovered/Resolved]

NARRATIVE: CASE EVENT DATE: 20180809
